FAERS Safety Report 9297207 (Version 1)
Quarter: 2013Q2

REPORT INFORMATION
  Report Type: Spontaneous
  Country: BR (occurrence: BR)
  Receive Date: 20130520
  Receipt Date: 20130520
  Transmission Date: 20140414
  Serious: Yes (Hospitalization)
  Sender: FDA-Public Use
  Company Number: BR-BIOGENIDEC-2013BI043386

PATIENT
  Sex: Female

DRUGS (13)
  1. AVONEX [Suspect]
     Indication: MULTIPLE SCLEROSIS
     Route: 030
     Dates: start: 20100613, end: 20120114
  2. AVONEX [Suspect]
     Indication: MULTIPLE SCLEROSIS
     Route: 030
     Dates: start: 20120910
  3. ZYLIUM [Concomitant]
  4. TYLEX [Concomitant]
  5. NATURETTI [Concomitant]
  6. HYDROCHLOROTHIAZIDE [Concomitant]
  7. SELOZOK [Concomitant]
  8. ISOFLAVONA [Concomitant]
  9. CITRACAL [Concomitant]
  10. SLOW-K [Concomitant]
  11. SINVASTASTINA [Concomitant]
  12. GABAPENTINA [Concomitant]
  13. BACLOFEN [Concomitant]

REACTIONS (6)
  - Thoracic vertebral fracture [Not Recovered/Not Resolved]
  - Calcinosis [Unknown]
  - Chest pain [Not Recovered/Not Resolved]
  - Influenza [Not Recovered/Not Resolved]
  - Osteopenia [Not Recovered/Not Resolved]
  - Muscle spasms [Unknown]
